FAERS Safety Report 4934130-2 (Version None)
Quarter: 2006Q1

REPORT INFORMATION
  Report Type: 
  Country: None (occurrence: None)
  Receive Date: 20060303
  Receipt Date: 20060217
  Transmission Date: 20060701
  Serious: Yes (Hospitalization, Other)
  Sender: FDA-Public Use
  Company Number: 2006-00365

PATIENT
  Age: 55 Year
  Sex: Male
  Weight: 83.9 kg

DRUGS (8)
  1. VELCADE [Suspect]
     Indication: MULTIPLE MYELOMA
     Dosage: 1.30 + 2.20 MG/M2, (2.8 MG) 2/WEEK, IV BOLUS - SEE IMAGE
     Route: 040
     Dates: end: 20051121
  2. VELCADE [Suspect]
     Indication: MULTIPLE MYELOMA
     Dosage: 1.30 + 2.20 MG/M2, (2.8 MG) 2/WEEK, IV BOLUS - SEE IMAGE
     Route: 040
     Dates: start: 20050909
  3. METOPROLOL XL (METOPROLOL) [Concomitant]
  4. HYDROCHLOROTHIAZIDE [Concomitant]
  5. VERAPAMIL [Concomitant]
  6. ACIPHEX [Concomitant]
  7. CELEXA [Concomitant]
  8. CYMBALTA [Concomitant]

REACTIONS (4)
  - AUTONOMIC FAILURE SYNDROME [None]
  - NEUROPATHY PERIPHERAL [None]
  - ORTHOSTATIC HYPOTENSION [None]
  - SYNCOPE [None]
